FAERS Safety Report 6456123-9 (Version None)
Quarter: 2009Q4

REPORT INFORMATION
  Report Type: 
  Country: None (occurrence: None)
  Receive Date: 20091120
  Receipt Date: 20091109
  Transmission Date: 20100525
  Serious: Yes (Hospitalization)
  Sender: FDA-Public Use
  Company Number: 2009013097

PATIENT
  Age: 39 Year
  Sex: Female
  Weight: 74.8435 kg

DRUGS (5)
  1. FENTANYL CITRATE [Suspect]
     Indication: BACK PAIN
     Dosage: (1200 MCG, Q 6 HOURS PRN), BU
     Route: 002
  2. FENTANYL CITRATE [Suspect]
     Indication: NERVOUS SYSTEM DISORDER
     Dosage: (1200 MCG, Q 6 HOURS PRN), BU
     Route: 002
  3. ROXICODONE [Concomitant]
  4. XANAX [Concomitant]
  5. TOPAMAX [Concomitant]

REACTIONS (8)
  - CHILLS [None]
  - DRUG INEFFECTIVE [None]
  - DRUG WITHDRAWAL SYNDROME [None]
  - HEADACHE [None]
  - INSOMNIA [None]
  - NAUSEA [None]
  - PRODUCT TASTE ABNORMAL [None]
  - VOMITING [None]
